FAERS Safety Report 24418049 (Version 2)
Quarter: 2024Q4

REPORT INFORMATION
  Report Type: Spontaneous
  Country: CA (occurrence: CA)
  Receive Date: 20241009
  Receipt Date: 20241106
  Transmission Date: 20250114
  Serious: Yes (Other)
  Sender: AMERICAN REGENT
  Company Number: CA-AMERICAN REGENT INC-2024003814

PATIENT
  Age: 51 Year
  Sex: Female

DRUGS (1)
  1. VENOFER [Suspect]
     Active Substance: IRON SUCROSE
     Indication: Iron deficiency
     Dosage: SCHEDULED TO RECEIVE 300 MILLIGRAM IN 250 ML NS OVER 3 HOURS (DOSAGE TEXT: 100MG/5ML)
     Dates: start: 20240607, end: 20240607

REACTIONS (2)
  - Sensation of foreign body [Recovered/Resolved]
  - Throat tightness [Recovered/Resolved]

NARRATIVE: CASE EVENT DATE: 20240607
